FAERS Safety Report 25137675 (Version 1)
Quarter: 2025Q1

REPORT INFORMATION
  Report Type: Other
  Country: US (occurrence: US)
  Receive Date: 20250329
  Receipt Date: 20250329
  Transmission Date: 20250409
  Serious: Yes (Hospitalization)
  Sender: ANI
  Company Number: US-ANIPHARMA-022095

PATIENT
  Age: 54 Year
  Sex: Male

DRUGS (14)
  1. LORAZEPAM [Suspect]
     Active Substance: LORAZEPAM
     Indication: Psychiatric symptom
  2. RISPERIDONE [Suspect]
     Active Substance: RISPERIDONE
     Indication: Psychiatric symptom
  3. LITHIUM [Concomitant]
     Active Substance: LITHIUM
     Indication: Psychiatric symptom
  4. BUSPIRONE [Concomitant]
     Active Substance: BUSPIRONE HYDROCHLORIDE
     Indication: Psychiatric symptom
  5. CARBAMAZEPINE [Concomitant]
     Active Substance: CARBAMAZEPINE
     Indication: Psychiatric symptom
  6. FLUVOXAMINE [Concomitant]
     Active Substance: FLUVOXAMINE
     Indication: Psychiatric symptom
  7. ESCITALOPRAM [Concomitant]
     Active Substance: ESCITALOPRAM OXALATE
     Indication: Psychiatric symptom
  8. VENLAFAXINE [Concomitant]
     Active Substance: VENLAFAXINE HYDROCHLORIDE
     Indication: Psychiatric symptom
  9. SERTRALINE [Concomitant]
     Active Substance: SERTRALINE HYDROCHLORIDE
     Indication: Psychiatric symptom
  10. QUETIAPINE [Concomitant]
     Active Substance: QUETIAPINE
     Indication: Psychiatric symptom
  11. PROPRANOLOL [Concomitant]
     Active Substance: PROPRANOLOL HYDROCHLORIDE
     Indication: Psychiatric symptom
  12. SERTRALINE [Concomitant]
     Active Substance: SERTRALINE HYDROCHLORIDE
     Indication: Psychiatric symptom
  13. LORAZEPAM [Suspect]
     Active Substance: LORAZEPAM
     Indication: Psychiatric symptom
  14. LORAZEPAM [Suspect]
     Active Substance: LORAZEPAM
     Indication: Psychiatric symptom

REACTIONS (2)
  - Parkinsonism [Unknown]
  - Drug ineffective [Unknown]
